FAERS Safety Report 13472568 (Version 3)
Quarter: 2017Q4

REPORT INFORMATION
  Report Type: Spontaneous
  Country: AR (occurrence: AR)
  Receive Date: 20170424
  Receipt Date: 20171109
  Transmission Date: 20180320
  Serious: Yes (Other)
  Sender: FDA-Public Use
  Company Number: AR-PFIZER INC-2016539750

PATIENT
  Age: 82 Year
  Sex: Male

DRUGS (1)
  1. INLYTA [Suspect]
     Active Substance: AXITINIB
     Indication: RENAL CANCER
     Dosage: 5 MG, DAILY
     Dates: start: 20160501, end: 201704

REACTIONS (11)
  - Pneumonia [Recovering/Resolving]
  - Senile dementia [Recovering/Resolving]
  - Bronchitis [Recovered/Resolved]
  - Depressed mood [Unknown]
  - Laboratory test abnormal [Not Recovered/Not Resolved]
  - Hypersomnia [Recovering/Resolving]
  - Diarrhoea [Recovering/Resolving]
  - Decreased appetite [Unknown]
  - Urinary tract infection [Recovering/Resolving]
  - Restlessness [Recovering/Resolving]
  - Disorientation [Recovering/Resolving]

NARRATIVE: CASE EVENT DATE: 20161001
